FAERS Safety Report 17275408 (Version 1)
Quarter: 2020Q1

REPORT INFORMATION
  Report Type: Spontaneous
  Country: US (occurrence: US)
  Receive Date: 20200116
  Receipt Date: 20200116
  Transmission Date: 20200409
  Serious: Yes (Death, Other)
  Sender: FDA-Public Use
  Company Number: US-MALLINCKRODT-T202000165

PATIENT
  Age: 52 Year
  Sex: Male

DRUGS (2)
  1. HEROIN [Suspect]
     Active Substance: DIAMORPHINE
     Indication: PRODUCT USED FOR UNKNOWN INDICATION
     Dosage: UNK
     Route: 065
  2. METHADONE [Suspect]
     Active Substance: METHADONE HYDROCHLORIDE
     Indication: PRODUCT USED FOR UNKNOWN INDICATION
     Dosage: UNK
     Route: 065

REACTIONS (13)
  - Hepatic function abnormal [Fatal]
  - Peripheral artery thrombosis [Fatal]
  - Cellulitis [Unknown]
  - Thrombocytopenia [Fatal]
  - Cerebrovascular accident [Fatal]
  - Overdose [Fatal]
  - Unresponsive to stimuli [Unknown]
  - Substance abuse [Fatal]
  - Rhabdomyolysis [Fatal]
  - Myocardial infarction [Fatal]
  - Nutritional condition abnormal [Fatal]
  - Acute kidney injury [Fatal]
  - Glucose-6-phosphate dehydrogenase deficiency [Unknown]
